FAERS Safety Report 12297294 (Version 2)
Quarter: 2016Q2

REPORT INFORMATION
  Report Type: Report from Study
  Country: SE (occurrence: SE)
  Receive Date: 20160422
  Receipt Date: 20160512
  Transmission Date: 20160815
  Serious: Yes (Other)
  Sender: FDA-Public Use
  Company Number: SE-EISAI MEDICAL RESEARCH-EC-2016-015180

PATIENT
  Age: 38 Year
  Sex: Female
  Weight: 66 kg

DRUGS (6)
  1. FOLACIN [Concomitant]
     Active Substance: FOLIC ACID
  2. FYCOMPA [Suspect]
     Active Substance: PERAMPANEL
     Indication: EPILEPSY
     Route: 048
     Dates: start: 20150408, end: 20150504
  3. LEVETIRACETAM. [Concomitant]
     Active Substance: LEVETIRACETAM
  4. TEGRETOL XR [Concomitant]
     Active Substance: CARBAMAZEPINE
  5. FYCOMPA [Suspect]
     Active Substance: PERAMPANEL
     Route: 048
     Dates: start: 20150505, end: 20150521
  6. FYCOMPA [Suspect]
     Active Substance: PERAMPANEL
     Route: 048
     Dates: start: 20150522, end: 20150607

REACTIONS (1)
  - Seizure [Recovered/Resolved]

NARRATIVE: CASE EVENT DATE: 20150501
